FAERS Safety Report 18436977 (Version 1)
Quarter: 2020Q4

REPORT INFORMATION
  Report Type: Spontaneous
  Country: NG (occurrence: NG)
  Receive Date: 20201028
  Receipt Date: 20201028
  Transmission Date: 20210114
  Serious: Yes (Death)
  Sender: FDA-Public Use
  Company Number: NG-ROCHE-2698011

PATIENT
  Age: 27 Year
  Sex: Female

DRUGS (5)
  1. HERCEPTIN [Suspect]
     Active Substance: TRASTUZUMAB
     Indication: INVASIVE DUCTAL BREAST CARCINOMA
     Dosage: RECEIVED 6 CYCLES
     Route: 041
  2. LAPATINIB [Suspect]
     Active Substance: LAPATINIB
     Indication: INVASIVE DUCTAL BREAST CARCINOMA
     Dosage: 3 CYCLES
     Route: 065
  3. XELODA [Suspect]
     Active Substance: CAPECITABINE
     Indication: INVASIVE DUCTAL BREAST CARCINOMA
     Dosage: 3 CYCLES
     Route: 048
  4. KADCYLA [Suspect]
     Active Substance: ADO-TRASTUZUMAB EMTANSINE
     Indication: INVASIVE DUCTAL BREAST CARCINOMA
     Dosage: RECEIVED 3 CYCLES OF THE 3 WEEKLY REGIMEN BUT COULD NOT CONTINUE
     Route: 065
  5. KADCYLA [Suspect]
     Active Substance: ADO-TRASTUZUMAB EMTANSINE
     Dosage: RECEIVED 5 CYCLES
     Route: 065

REACTIONS (6)
  - Drooling [Unknown]
  - Gait inability [Unknown]
  - General physical health deterioration [Unknown]
  - Headache [Unknown]
  - Death [Fatal]
  - Therapeutic response decreased [Unknown]
